FAERS Safety Report 8955505 (Version 1)
Quarter: 2012Q4

REPORT INFORMATION
  Report Type: 
  Country: US (occurrence: US)
  Receive Date: 20121207
  Receipt Date: 20121207
  Transmission Date: 20130627
  Serious: Yes (Death, Other)
  Sender: FDA-Public Use
  Company Number: US-ROCHE-1164169

PATIENT

DRUGS (4)
  1. BEVACIZUMAB [Suspect]
     Indication: GLIOBLASTOMA
     Dosage: every 14 days is added at least 42 days postoperatively
     Route: 065
  2. TEMOZOLOMIDE [Suspect]
     Indication: GLIOBLASTOMA
     Route: 065
  3. TEMOZOLOMIDE [Suspect]
     Dosage: on days 1-5 of a 28-day cycle, Following RT 12 cycles
     Route: 065
  4. GLIADEL [Suspect]
     Indication: GLIOBLASTOMA
     Route: 065

REACTIONS (8)
  - Cerebrovascular accident [Fatal]
  - Wound infection [Fatal]
  - Thrombocytopenia [Unknown]
  - Infection [Unknown]
  - Embolism venous [Unknown]
  - Brain oedema [Unknown]
  - Fatigue [Unknown]
  - Enterocolitis [Unknown]
